FAERS Safety Report 9013752 (Version 1)
Quarter: 2013Q1

REPORT INFORMATION
  Report Type: Spontaneous
  Country: US (occurrence: None)
  Receive Date: 20130108
  Receipt Date: 20130108
  Transmission Date: 20140127
  Serious: No
  Sender: FDA-Public Use
  Company Number: None

PATIENT
  Age: 53 Year
  Sex: Female

DRUGS (1)
  1. STELARA [Suspect]
     Dosage: STELARA 90MG PREFILLED SYRINGE

REACTIONS (2)
  - Atrial fibrillation [None]
  - Drug interaction [None]
